FAERS Safety Report 9490124 (Version 1)
Quarter: 2013Q3

REPORT INFORMATION
  Report Type: Spontaneous
  Country: US (occurrence: US)
  Receive Date: 20130830
  Receipt Date: 20130830
  Transmission Date: 20140515
  Serious: Yes (Hospitalization, Other)
  Sender: FDA-Public Use
  Company Number: US-ASTRAZENECA-2013SE64835

PATIENT
  Age: 72 Year
  Sex: Male
  Weight: 70.4 kg

DRUGS (4)
  1. PRILOSEC [Suspect]
     Indication: GASTROOESOPHAGEAL REFLUX DISEASE
     Route: 048
     Dates: end: 20130810
  2. PROTONIX [Suspect]
     Indication: GASTROOESOPHAGEAL REFLUX DISEASE
     Route: 042
     Dates: start: 20130810
  3. FLUCONAZOLE [Concomitant]
     Indication: CANDIDA INFECTION
     Route: 042
     Dates: start: 2013
  4. FLUCONAZOLE [Concomitant]
     Indication: CANDIDA INFECTION
     Route: 042

REACTIONS (5)
  - Candida infection [Unknown]
  - Bacterial infection [Unknown]
  - Respiratory failure [Unknown]
  - Fungal test positive [Unknown]
  - Off label use [Unknown]
